FAERS Safety Report 8226192 (Version 2)
Quarter: 2013Q4

REPORT INFORMATION
  Report Type: Report from Study
  Country: US (occurrence: US)
  Receive Date: 20111103
  Receipt Date: 20131108
  Transmission Date: 20140711
  Serious: Yes (Other)
  Sender: FDA-Public Use
  Company Number: US-ELI_LILLY_AND_COMPANY-US201109004407

PATIENT
  Age: 57 Year
  Sex: Female

DRUGS (11)
  1. SOMATROPIN [Suspect]
     Indication: HYPOPITUITARISM
     Dosage: 0.7 MG, QD
  2. SOMATROPIN [Suspect]
     Indication: GROWTH HORMONE DEFICIENCY
     Dosage: 1.0MG/QD
     Route: 058
  3. RITALIN [Concomitant]
     Dosage: 20 MG, UNK
  4. PROVIGIL [Concomitant]
     Dosage: 200 MG, UNK
  5. DITROPAN [Concomitant]
     Dosage: UNK, UNKNOWN
  6. NEXIUM [Concomitant]
     Dosage: UNK, UNKNOWN
  7. PREDNISONE [Concomitant]
     Dosage: 7.5 MG, UNK
  8. LORTAB [Concomitant]
     Dosage: 7.5 MG, TID
  9. DURAGESIC [Concomitant]
     Dosage: 50 UG, EVERY 48 HOURS
  10. LEVOXYL [Concomitant]
     Dosage: 1.25 MG, QD
  11. SYNTHROID [Concomitant]
     Dosage: UNK, UNKNOWN
     Route: 065

REACTIONS (16)
  - Apnoea [Unknown]
  - Oral surgery [Unknown]
  - Confusional state [Unknown]
  - Drug dose omission [Unknown]
  - Insomnia [Unknown]
  - Asthenia [Recovered/Resolved]
  - Pain in extremity [Unknown]
  - Intervertebral disc protrusion [Unknown]
  - Fall [Unknown]
  - Sleep disorder [Unknown]
  - Pain [Unknown]
  - Sleep apnoea syndrome [Unknown]
  - Somnolence [Unknown]
  - Malaise [Unknown]
  - Weight decreased [Unknown]
  - Hormone level abnormal [Unknown]
